FAERS Safety Report 25178342 (Version 1)
Quarter: 2025Q2

REPORT INFORMATION
  Report Type: Spontaneous
  Country: US (occurrence: None)
  Receive Date: 20250407
  Receipt Date: 20250407
  Transmission Date: 20250716
  Serious: Yes (unspecified)
  Sender: FDA-CTU
  Company Number: None

PATIENT
  Age: 49 Year
  Sex: Male
  Weight: 72.57 kg

DRUGS (1)
  1. VUEWAY [Suspect]
     Active Substance: GADOPICLENOL
     Route: 042

REACTIONS (2)
  - Pharyngeal swelling [None]
  - Ear, nose and throat disorder [None]

NARRATIVE: CASE EVENT DATE: 20250407
